FAERS Safety Report 14448929 (Version 1)
Quarter: 2018Q1

REPORT INFORMATION
  Report Type: Spontaneous
  Country: US (occurrence: US)
  Receive Date: 20180126
  Receipt Date: 20180126
  Transmission Date: 20180509
  Serious: Yes (Hospitalization, Other)
  Sender: FDA-Public Use
  Company Number: US-OTSUKA-DJ20106277

PATIENT

DRUGS (1)
  1. ABILIFY [Suspect]
     Active Substance: ARIPIPRAZOLE
     Route: 048

REACTIONS (8)
  - Somnolence [Recovering/Resolving]
  - Enuresis [Recovered/Resolved]
  - Feeding disorder [Not Recovered/Not Resolved]
  - Tremor [Recovered/Resolved]
  - Drooling [Not Recovered/Not Resolved]
  - Dysarthria [Recovering/Resolving]
  - Motor dysfunction [Unknown]
  - Drug dispensing error [Unknown]
